FAERS Safety Report 8023434-5 (Version None)
Quarter: 2012Q1

REPORT INFORMATION
  Report Type: 
  Country: None (occurrence: None)
  Receive Date: 20120105
  Receipt Date: 20111223
  Transmission Date: 20120608
  Serious: Yes (Life-Threatening, Hospitalization, Disabling, Other)
  Sender: FDA-Public Use
  Company Number: FR-BIOGENIDEC-2011BI002123

PATIENT
  Age: 26 Year
  Sex: Female

DRUGS (12)
  1. AUGMENTIN '125' [Concomitant]
  2. FUNGIZONE [Concomitant]
     Dates: end: 20110315
  3. POLYETHYLENE GLYCOL [Concomitant]
  4. TYSABRI [Suspect]
     Indication: MULTIPLE SCLEROSIS
     Route: 042
     Dates: start: 20080708, end: 20100922
  5. MOTILIUM [Concomitant]
     Indication: NAUSEA
  6. VITAMIN D [Concomitant]
  7. LOVENOX [Concomitant]
     Indication: TOOTHACHE
  8. NEXIUM [Concomitant]
  9. ALMOGRAN [Concomitant]
     Indication: MIGRAINE
  10. LOVENOX [Concomitant]
  11. ACETAMINOPHEN AND TRAMADOL HCL [Concomitant]
     Indication: PAIN
  12. TRIPHASIL-21 [Concomitant]

REACTIONS (7)
  - HEMIPARESIS [None]
  - PYELONEPHRITIS [None]
  - STAPHYLOCOCCAL SEPSIS [None]
  - SEPTIC SHOCK [None]
  - PNEUMONIA [None]
  - ABSCESS [None]
  - CYSTITIS HAEMORRHAGIC [None]
